FAERS Safety Report 7002425-7 (Version None)
Quarter: 2010Q3

REPORT INFORMATION
  Report Type: 
  Country: None (occurrence: None)
  Receive Date: 20100920
  Receipt Date: 20070605
  Transmission Date: 20110219
  Serious: Yes (Other)
  Sender: FDA-Public Use
  Company Number: US-ASTRAZENECA-2006UW24547

PATIENT
  Age: 15135 Day
  Sex: Female
  Weight: 106.6 kg

DRUGS (13)
  1. SEROQUEL [Suspect]
     Indication: BIPOLAR DISORDER
     Route: 048
     Dates: start: 20000401
  2. SEROQUEL [Suspect]
     Dosage: 100 MG 1 TO 3 EVERY NIGHT
     Route: 048
     Dates: start: 20011023
  3. ABILIFY [Concomitant]
     Dates: start: 20061105
  4. TRAZODONE HCL [Concomitant]
     Dosage: 50 TWO AT NIGHT
     Dates: start: 20011023
  5. COCAINE [Concomitant]
     Dates: end: 19980101
  6. ESKALITH CR [Concomitant]
     Dosage: 450 MG 1 IN MORNING 2 AT NIGHT
     Dates: start: 20011023
  7. TAPAZOLE [Concomitant]
     Dosage: 10 MG 2 PILLS THREE TIMES DAY
     Dates: start: 20050613
  8. AVANDIA [Concomitant]
     Dates: start: 20050613
  9. FERROUS SULFATE [Concomitant]
     Dosage: 325 MG 1 TABLET EVERY DAY
     Route: 048
     Dates: start: 20050613
  10. DEPAKOTE [Concomitant]
     Dates: start: 20010401
  11. ZYPREXA [Concomitant]
     Dates: start: 20010401
  12. ACTOS [Concomitant]
     Dates: start: 20061105
  13. GLIPIZIDE [Concomitant]
     Dates: start: 20061105

REACTIONS (6)
  - DIABETES MELLITUS INADEQUATE CONTROL [None]
  - GLUCOSE TOLERANCE IMPAIRED [None]
  - HYPERGLYCAEMIA [None]
  - TARDIVE DYSKINESIA [None]
  - TYPE 1 DIABETES MELLITUS [None]
  - TYPE 2 DIABETES MELLITUS [None]
